FAERS Safety Report 22289410 (Version 1)
Quarter: 2023Q2

REPORT INFORMATION
  Report Type: Spontaneous
  Country: US (occurrence: None)
  Receive Date: 20230504
  Receipt Date: 20230504
  Transmission Date: 20230721
  Serious: Yes (Death, Life-Threatening, Hospitalization)
  Sender: FDA-Public Use
  Company Number: None

PATIENT
  Age: 94 Year
  Sex: Male
  Weight: 54.7 kg

DRUGS (1)
  1. APIXABAN [Suspect]
     Active Substance: APIXABAN
     Indication: Atrial fibrillation
     Dosage: FREQUENCY : TWICE A DAY;?
     Route: 048
     Dates: start: 20210913, end: 20230227

REACTIONS (6)
  - Subdural haematoma [None]
  - Subdural haemorrhage [None]
  - SARS-CoV-2 test positive [None]
  - Respiratory distress [None]
  - Hypervolaemia [None]
  - Hypotension [None]

NARRATIVE: CASE EVENT DATE: 20230227
